FAERS Safety Report 14355282 (Version 2)
Quarter: 2018Q1

REPORT INFORMATION
  Report Type: Spontaneous
  Country: US (occurrence: US)
  Receive Date: 20180105
  Receipt Date: 20180226
  Transmission Date: 20180509
  Serious: Yes (Other)
  Sender: FDA-Public Use
  Company Number: US-PFIZER INC-2018002332

PATIENT
  Age: 58 Year
  Sex: Male

DRUGS (2)
  1. METHOTREXATE SODIUM. [Suspect]
     Active Substance: METHOTREXATE SODIUM
     Dosage: 0.8 ML, WEEKLY (IT COULD BE A LITTLE MORE OR A LITTLE LESS)
     Route: 058
     Dates: start: 201712
  2. METHOTREXATE SODIUM. [Suspect]
     Active Substance: METHOTREXATE SODIUM
     Dosage: 0.8 ML, WEEKLY (IT COULD BE A LITTLE MORE OR A LITTLE LESS)
     Route: 058
     Dates: start: 201712

REACTIONS (6)
  - Affective disorder [Unknown]
  - Product use issue [Unknown]
  - Injection site swelling [Recovered/Resolved]
  - Injection site vesicles [Recovered/Resolved]
  - Injection site scar [Recovered/Resolved]
  - Injection site inflammation [Recovered/Resolved]

NARRATIVE: CASE EVENT DATE: 201712
